FAERS Safety Report 5960499-6 (Version None)
Quarter: 2008Q4

REPORT INFORMATION
  Report Type: 
  Country: None (occurrence: None)
  Receive Date: 20081120
  Receipt Date: 20080206
  Transmission Date: 20090506
  Serious: No
  Sender: FDA-Public Use
  Company Number: US-ABBOTT-08P-163-0437187-00

PATIENT
  Sex: Female
  Weight: 49.94 kg

DRUGS (1)
  1. BIAXIN [Suspect]
     Indication: DRUG USE FOR UNKNOWN INDICATION
     Route: 048

REACTIONS (1)
  - PRURITUS [None]
